FAERS Safety Report 4925238-6 (Version None)
Quarter: 2006Q1

REPORT INFORMATION
  Report Type: 
  Country: None (occurrence: None)
  Receive Date: 20060228
  Receipt Date: 20060127
  Transmission Date: 20060701
  Serious: Yes (Other)
  Sender: FDA-Public Use
  Company Number: PHBS2006IT01702

PATIENT
  Age: 60 Year
  Sex: Female

DRUGS (1)
  1. AREDIA [Suspect]
     Indication: METASTASES TO BONE
     Dosage: 90 MG EVERY 28 DAYS
     Route: 042
     Dates: start: 20040123

REACTIONS (2)
  - OSTEONECROSIS [None]
  - TOOTH LOSS [None]
